FAERS Safety Report 5713371-0 (Version None)
Quarter: 2008Q2

REPORT INFORMATION
  Report Type: 
  Country: None (occurrence: None)
  Receive Date: 20080422
  Receipt Date: 20080414
  Transmission Date: 20081010
  Serious: Yes (Hospitalization)
  Sender: FDA-Public Use
  Company Number: JP-GENENTECH-237363

PATIENT
  Sex: Male
  Weight: 55.5 kg

DRUGS (35)
  1. RITUXIMAB [Suspect]
     Indication: NON-HODGKIN'S LYMPHOMA
     Dosage: 375 MG, UNK
     Route: 042
     Dates: start: 20060904
  2. FLUDARABINE PHOSPHATE [Suspect]
     Indication: NON-HODGKIN'S LYMPHOMA
     Dosage: 40 MG, UNK
     Route: 048
     Dates: start: 20060904
  3. BIOFERMIN [Concomitant]
     Indication: CONSTIPATION
     Dosage: 3 TABLET, TID
     Route: 048
     Dates: start: 20050101, end: 20070403
  4. BIOFERMIN [Concomitant]
     Dosage: 1 TABLET, UNK
     Route: 048
     Dates: start: 20070404
  5. BIOFERMIN [Concomitant]
     Dosage: 3 TABLET, TID
     Route: 048
     Dates: start: 20070514
  6. CYANOCOBALAMIN [Concomitant]
     Indication: HYPOAESTHESIA
     Dosage: 1500 MG, TID
     Route: 048
     Dates: start: 20040101, end: 20070403
  7. CYANOCOBALAMIN [Concomitant]
     Dosage: 500 MG, UNK
     Route: 048
     Dates: start: 20070404
  8. CYANOCOBALAMIN [Concomitant]
     Dosage: 1500 MG, TID
     Route: 048
     Dates: start: 20070514
  9. RILMAZAFONE HYDROCHLORIDE [Concomitant]
     Indication: INSOMNIA
     Dosage: 1 MG, QD
     Route: 048
     Dates: start: 20010101
  10. AMLODIPINE BESYLATE [Concomitant]
     Indication: HYPERTENSION
     Dosage: 2.5 MG, QD
     Route: 048
     Dates: start: 19990101, end: 20070506
  11. SENNA LEAF [Concomitant]
     Indication: CONSTIPATION
     Dosage: 1 MG, QD
     Route: 048
     Dates: start: 20050101, end: 20070403
  12. SENNA LEAF [Concomitant]
     Dosage: 1 G, UNK
     Route: 048
     Dates: start: 20070411
  13. SUCRALFATE [Concomitant]
     Indication: DRUG USE FOR UNKNOWN INDICATION
     Dosage: 3 G, QD
     Route: 048
  14. ETIZOLAM [Concomitant]
     Indication: HEADACHE
     Dosage: 0.5 G, QD
     Route: 048
     Dates: start: 20060907, end: 20060908
  15. ETIZOLAM [Concomitant]
     Dosage: 0.5 G, UNK
     Route: 048
     Dates: start: 20060916
  16. ETIZOLAM [Concomitant]
     Dosage: 1 MG, UNK
     Route: 048
     Dates: start: 20060926, end: 20070128
  17. ETIZOLAM [Concomitant]
     Dosage: 1 MG, UNK
     Route: 048
     Dates: start: 20070207, end: 20070410
  18. ETIZOLAM [Concomitant]
     Dosage: 1 MG, TID
     Route: 048
     Dates: start: 20070130, end: 20070206
  19. BAKTAR [Concomitant]
     Indication: PROPHYLAXIS
     Dosage: 1 DF, QD
     Route: 048
     Dates: start: 20061016, end: 20070228
  20. FAMOTIDIN [Concomitant]
     Indication: SINUSITIS
     Dosage: 10 MG, UNK
     Dates: start: 20061227, end: 20070122
  21. BRUFEN [Concomitant]
     Indication: HEADACHE
     Dosage: 100 MG, UNK
     Route: 048
     Dates: start: 20030101, end: 20060830
  22. PETHIDINE HYDROCHLORIDE [Concomitant]
     Indication: PREMEDICATION
     Dosage: 0.5 ML, UNK
     Route: 042
     Dates: start: 20060822
  23. CALONAL [Concomitant]
     Indication: PREMEDICATION
     Dosage: 400 MG, UNK
     Route: 048
     Dates: start: 20060904, end: 20070122
  24. CALONAL [Concomitant]
     Indication: PAIN
     Dosage: 400 MG, UNK
     Route: 048
     Dates: start: 20060909, end: 20060930
  25. PROCAINE HCL [Concomitant]
     Indication: ASPIRATION BONE MARROW
     Dates: start: 20060901
  26. POLARAMINE [Concomitant]
     Indication: PREMEDICATION
     Dosage: 2 MG, UNK
     Route: 048
     Dates: start: 20060904, end: 20070122
  27. CHLORPHENIRAMINE MALEATE [Concomitant]
     Indication: INFECTION
     Dosage: 10 MG, BID
     Route: 042
     Dates: start: 20060904
  28. ZOVIRAX [Concomitant]
     Indication: PROPHYLAXIS
     Dosage: 200 MG, UNK
     Route: 048
     Dates: start: 20061010, end: 20070204
  29. ISODINE [Concomitant]
     Indication: PROPHYLAXIS
     Dates: start: 20061022, end: 20061025
  30. IOPAMIDOL [Concomitant]
     Indication: COMPUTERISED TOMOGRAM
     Dosage: 100 ML, UNK
     Route: 042
     Dates: start: 20060831, end: 20070507
  31. LACTATED RINGER'S [Concomitant]
     Indication: FLUID REPLACEMENT
     Dosage: 1000 ML, UNK
     Route: 042
     Dates: start: 20070405, end: 20070406
  32. SOLDEM [Concomitant]
     Indication: FLUID REPLACEMENT
     Dosage: 1000 ML, UNK
     Route: 042
     Dates: start: 20070405, end: 20070406
  33. FLURBIPROFEN [Concomitant]
     Indication: PYREXIA
     Dosage: 50 MG, UNK
     Route: 042
     Dates: start: 20070406
  34. LANSOPRAZOLE [Concomitant]
     Indication: ULCER
     Dosage: 30 MG, UNK
     Route: 048
     Dates: start: 20070405, end: 20070410
  35. RABEPRAZOLE SODIUM [Concomitant]
     Indication: ULCER
     Dosage: 10 MG, UNK
     Route: 048
     Dates: start: 20070411

REACTIONS (1)
  - GASTRIC CANCER [None]
